FAERS Safety Report 25579002 (Version 1)
Quarter: 2025Q3

REPORT INFORMATION
  Report Type: Spontaneous
  Country: CA (occurrence: CA)
  Receive Date: 20250718
  Receipt Date: 20250718
  Transmission Date: 20251021
  Serious: Yes (Other)
  Sender: MYLAN
  Company Number: CA-MYLANLABS-2025M1059764

PATIENT
  Age: 3 Year
  Sex: Female

DRUGS (12)
  1. VALPROIC ACID [Suspect]
     Active Substance: VALPROIC ACID
     Indication: Product used for unknown indication
  2. VALPROIC ACID [Suspect]
     Active Substance: VALPROIC ACID
     Route: 065
  3. VALPROIC ACID [Suspect]
     Active Substance: VALPROIC ACID
     Route: 065
  4. VALPROIC ACID [Suspect]
     Active Substance: VALPROIC ACID
  5. CANNABIDIOL [Suspect]
     Active Substance: CANNABIDIOL
     Indication: Product used for unknown indication
  6. CANNABIDIOL [Suspect]
     Active Substance: CANNABIDIOL
     Route: 065
  7. CANNABIDIOL [Suspect]
     Active Substance: CANNABIDIOL
     Route: 065
  8. CANNABIDIOL [Suspect]
     Active Substance: CANNABIDIOL
  9. TRILEPTAL [Suspect]
     Active Substance: OXCARBAZEPINE
     Indication: Seizure
     Dosage: 1 DOSAGE FORM, BID (2 EVERY 1 DAYS)
  10. TRILEPTAL [Suspect]
     Active Substance: OXCARBAZEPINE
     Dosage: 1 DOSAGE FORM, BID (2 EVERY 1 DAYS)
     Route: 048
  11. TRILEPTAL [Suspect]
     Active Substance: OXCARBAZEPINE
     Dosage: 1 DOSAGE FORM, BID (2 EVERY 1 DAYS)
     Route: 048
  12. TRILEPTAL [Suspect]
     Active Substance: OXCARBAZEPINE
     Dosage: 1 DOSAGE FORM, BID (2 EVERY 1 DAYS)

REACTIONS (2)
  - Seizure [Not Recovered/Not Resolved]
  - Drug ineffective [Not Recovered/Not Resolved]
